FAERS Safety Report 8125200-9 (Version None)
Quarter: 2012Q1

REPORT INFORMATION
  Report Type: 
  Country: None (occurrence: None)
  Receive Date: 20120209
  Receipt Date: 20120207
  Transmission Date: 20120608
  Serious: Yes (Other)
  Sender: FDA-Public Use
  Company Number: US-BAYER-2012-012680

PATIENT
  Age: 73 Year
  Sex: Female
  Weight: 86.168 kg

DRUGS (4)
  1. ALKA-SELTZER PLUS COLD SPARKLING ORIGINAL [Suspect]
     Dosage: UNK
     Route: 048
     Dates: end: 20120207
  2. AMBIEN [Concomitant]
  3. TOPROL-XL [Concomitant]
  4. ACETAMINOPHEN [Concomitant]
     Dosage: UNK
     Dates: start: 20120206, end: 20120206

REACTIONS (1)
  - RECTAL HAEMORRHAGE [None]
